FAERS Safety Report 6266712-2 (Version None)
Quarter: 2009Q3

REPORT INFORMATION
  Report Type: 
  Country: None (occurrence: None)
  Receive Date: 20090714
  Receipt Date: 20090707
  Transmission Date: 20100115
  Serious: Yes (Hospitalization)
  Sender: FDA-Public Use
  Company Number: AT-BIOGENIDEC-2009BI011968

PATIENT
  Age: 27 Year
  Sex: Female

DRUGS (2)
  1. TYSABRI [Suspect]
     Indication: MULTIPLE SCLEROSIS
     Route: 042
     Dates: start: 20090202, end: 20090316
  2. TYSABRI [Suspect]
     Route: 042
     Dates: start: 20090202, end: 20090316

REACTIONS (5)
  - ANAEMIA [None]
  - APLASTIC ANAEMIA [None]
  - DRUG TOXICITY [None]
  - PYREXIA [None]
  - VIRAL INFECTION [None]
